FAERS Safety Report 4441311-3 (Version None)
Quarter: 2004Q3

REPORT INFORMATION
  Report Type: 
  Country: None (occurrence: None)
  Receive Date: 20040728
  Receipt Date: 20040329
  Transmission Date: 20050211
  Serious: No
  Sender: FDA-Public Use
  Company Number: USA040363406

PATIENT
  Age: 42 Year
  Sex: Male
  Weight: 62 kg

DRUGS (5)
  1. STRATTERA [Suspect]
     Indication: ATTENTION DEFICIT/HYPERACTIVITY DISORDER
     Dosage: 40 MG IN THE MORNING
     Dates: start: 20040328, end: 20040328
  2. GLUCOSAMINE [Concomitant]
  3. CHONDROITIN SULFATE [Concomitant]
  4. MSM(MSM) [Concomitant]
  5. VITAMIN C [Concomitant]

REACTIONS (12)
  - ANOREXIA [None]
  - DRY MOUTH [None]
  - DYSURIA [None]
  - FATIGUE [None]
  - FEELING ABNORMAL [None]
  - FEELING HOT [None]
  - FORMICATION [None]
  - INSOMNIA [None]
  - MYDRIASIS [None]
  - NAUSEA [None]
  - PANIC REACTION [None]
  - SCOTOMA [None]
